FAERS Safety Report 5529696-8 (Version None)
Quarter: 2007Q4

REPORT INFORMATION
  Report Type: 
  Country: None (occurrence: None)
  Receive Date: 20071129
  Receipt Date: 20071119
  Transmission Date: 20080405
  Serious: No
  Sender: FDA-Public Use
  Company Number: US-BAXTER-2007BH009193

PATIENT
  Sex: Female
  Weight: 97 kg

DRUGS (1)
  1. FEIBA VH IMMUNO [Suspect]
     Indication: DRUG USE FOR UNKNOWN INDICATION
     Route: 065

REACTIONS (3)
  - ARRHYTHMIA [None]
  - CHEST PAIN [None]
  - DEAFNESS [None]
